FAERS Safety Report 5860491-6 (Version None)
Quarter: 2008Q3

REPORT INFORMATION
  Report Type: 
  Country: None (occurrence: None)
  Receive Date: 20080827
  Receipt Date: 20080122
  Transmission Date: 20090109
  Serious: No
  Sender: FDA-Public Use
  Company Number: US-ABBOTT-07P-163-0419367-00

PATIENT
  Sex: Female
  Weight: 81.72 kg

DRUGS (5)
  1. NIASPAN [Suspect]
     Indication: BLOOD CHOLESTEROL
     Route: 048
     Dates: start: 20071001, end: 20071002
  2. NIASPAN [Suspect]
     Route: 048
     Dates: start: 20060101, end: 20070916
  3. ATENOLOL [Concomitant]
     Indication: BLOOD PRESSURE
     Route: 048
  4. CALCIUM [Concomitant]
     Indication: DRUG USE FOR UNKNOWN INDICATION
     Route: 048
  5. ERGOCALCIFEROL [Concomitant]
     Indication: DRUG USE FOR UNKNOWN INDICATION

REACTIONS (1)
  - RASH GENERALISED [None]
